FAERS Safety Report 5444427-8 (Version None)
Quarter: 2007Q3

REPORT INFORMATION
  Report Type: 
  Country: None (occurrence: None)
  Receive Date: 20070831
  Receipt Date: 20070808
  Transmission Date: 20080115
  Serious: Yes (Death)
  Sender: FDA-Public Use
  Company Number: 13242094

PATIENT
  Age: 57 Year
  Sex: Male

DRUGS (4)
  1. CETUXIMAB [Suspect]
     Indication: COLORECTAL CANCER METASTATIC
     Dosage: 250 MILLIGRAM/SQ. METER 1/1 WEEK; IVD
     Route: 041
     Dates: start: 20050919
  2. IRINOTECAN HCL [Suspect]
     Indication: COLORECTAL CANCER METASTATIC
     Dosage: 180 MILLIGRAM/SQ. METER 1/2 WEEK; IV
     Route: 042
     Dates: start: 20050919
  3. FOLINIC ACID [Suspect]
     Indication: COLORECTAL CANCER METASTATIC
     Dosage: 400 MILLIGRAM/SQ. METER 1/2 WEEK; IV
     Route: 042
     Dates: start: 20050919
  4. FLUOROURACIL INJ [Suspect]
     Indication: COLORECTAL CANCER METASTATIC
     Dosage: 1/2 WEEK; IV
     Route: 042
     Dates: start: 20050919

REACTIONS (11)
  - DIARRHOEA [None]
  - FEBRILE NEUTROPENIA [None]
  - GASTROINTESTINAL HAEMORRHAGE [None]
  - HAEMOGLOBIN DECREASED [None]
  - LEUKOPENIA [None]
  - METABOLIC ACIDOSIS [None]
  - NAUSEA [None]
  - PAIN [None]
  - PLATELET COUNT DECREASED [None]
  - SEPTIC SHOCK [None]
  - VOMITING [None]
